FAERS Safety Report 5623119-6 (Version None)
Quarter: 2008Q1

REPORT INFORMATION
  Report Type: 
  Country: None (occurrence: None)
  Receive Date: 20080212
  Receipt Date: 20080208
  Transmission Date: 20080703
  Serious: Yes (Other)
  Sender: FDA-Public Use
  Company Number: B0456784B

PATIENT
  Age: 51 Year
  Sex: Male
  Weight: 76 kg

DRUGS (5)
  1. ROSIGLITAZONE [Suspect]
     Dosage: 4MG PER DAY
     Dates: start: 20021111
  2. GLICLAZIDE [Concomitant]
     Dosage: 160MG PER DAY
     Route: 048
  3. GLUCOPHAGE [Concomitant]
     Dosage: 1700MG PER DAY
  4. SALOSPIR [Concomitant]
     Indication: HYPERTENSION
     Dosage: 100MG PER DAY
     Route: 048
     Dates: start: 20011001
  5. ACCUPRON [Concomitant]
     Indication: HYPERTENSION
     Route: 048

REACTIONS (1)
  - ALBUMINURIA [None]
